FAERS Safety Report 23472126 (Version 2)
Quarter: 2024Q1

REPORT INFORMATION
  Report Type: Report from Study
  Country: US (occurrence: US)
  Receive Date: 20240202
  Receipt Date: 20240207
  Transmission Date: 20240410
  Serious: Yes (Hospitalization)
  Sender: FDA-Public Use
  Company Number: US-BAUSCH-BL-2024-001449

PATIENT
  Age: 59 Year
  Sex: Female

DRUGS (40)
  1. XIFAXAN [Suspect]
     Active Substance: RIFAXIMIN
     Indication: Hepatic encephalopathy
     Route: 065
  2. XIFAXAN [Suspect]
     Active Substance: RIFAXIMIN
     Indication: Overgrowth bacterial
     Route: 048
     Dates: start: 20230308, end: 20240105
  3. XIFAXAN [Suspect]
     Active Substance: RIFAXIMIN
     Indication: Abdominal distension
  4. WELLBUTRIN [Concomitant]
     Active Substance: BUPROPION HYDROCHLORIDE
     Indication: Product used for unknown indication
     Route: 048
     Dates: start: 20220727, end: 20230630
  5. ANUSOL HC [Concomitant]
     Active Substance: HYDROCORTISONE
     Indication: Product used for unknown indication
     Dosage: INSERT 1 SUPPOSITORY RECTALLY TWICE DAILY
     Route: 054
     Dates: start: 20221220, end: 20231102
  6. EPINEPHRINE [Concomitant]
     Active Substance: EPINEPHRINE
     Indication: Hypersensitivity
     Dosage: AUTOINJECTOR (0.3 MG/0.3 ML), INJECT 0.3 ML IN MUSCLE, MAY REPEAT ONCE
     Route: 030
     Dates: start: 20220720
  7. THIAMINE HYDROCHLORIDE [Concomitant]
     Active Substance: THIAMINE HYDROCHLORIDE
     Indication: Product used for unknown indication
     Dosage: DAILY
     Route: 048
     Dates: start: 20200318
  8. PROAIR HFA [Concomitant]
     Active Substance: ALBUTEROL SULFATE
     Indication: Wheezing
     Dosage: INHALE 180 MCG (2 PUFFS TOTAL) IN LUNGS EVERY 6 HOURS AS NEEDED
     Route: 055
     Dates: start: 20190823
  9. ALBUTEROL SULFATE [Concomitant]
     Active Substance: ALBUTEROL SULFATE
     Indication: Wheezing
     Dosage: 2.5 MG/3ML (0.083%) NEBULIZER SOLUTION, (2.5 MG TOTAL) EVERY 4 HOURS AS NEEDED FOR USE IN NEBULIZER
     Route: 055
     Dates: start: 20221122, end: 20230103
  10. VITAMIN C [Concomitant]
     Active Substance: ASCORBIC ACID
     Indication: Product used for unknown indication
     Route: 048
     Dates: start: 20220715, end: 20230918
  11. FINACEA [Concomitant]
     Active Substance: AZELAIC ACID
     Indication: Product used for unknown indication
     Dosage: APPLY A PEA SIZE TO FACE ONCE DAILY
     Route: 061
     Dates: start: 20230107
  12. LATISSE [Concomitant]
     Active Substance: BIMATOPROST
     Indication: Product used for unknown indication
     Dosage: APPLY 1 DROP TO AFFECTED AREA AT BEDTIME APPLY TO BOTH EYELIDS AS DIRECTED
     Route: 061
     Dates: start: 20210121, end: 20230822
  13. OSCAL D [Concomitant]
     Active Substance: CALCIUM CARBONATE\CHOLECALCIFEROL
     Indication: Product used for unknown indication
     Dosage: 550/200 MG
     Route: 048
     Dates: start: 20220714
  14. VITAMIN B12 [Concomitant]
     Active Substance: CYANOCOBALAMIN
     Indication: Product used for unknown indication
     Dosage: INJECT 1 ML IN THE MUSCLE EVERY TUESDAY AND FRIDAY AS DIRECTED
     Route: 030
     Dates: start: 20210928, end: 20230822
  15. BENADRYL [Concomitant]
     Active Substance: DIPHENHYDRAMINE HYDROCHLORIDE
     Indication: Product used for unknown indication
     Dosage: TAKE 50 MG PO AT 1 HOUR PRIOR TO IV CONTRAST
     Route: 048
     Dates: start: 20210119
  16. DRISDOL [Concomitant]
     Active Substance: ERGOCALCIFEROL
     Indication: Product used for unknown indication
     Route: 048
     Dates: start: 20220523
  17. ESTRACE [Concomitant]
     Active Substance: ESTRADIOL
     Indication: Product used for unknown indication
     Dosage: 0.01% (0.1 MG/GRAM), INSERT 1 G VAGINAL TWICE WEEKLY
     Route: 067
     Dates: start: 20200603, end: 20230627
  18. LACTASE [Concomitant]
     Active Substance: LACTASE
     Indication: Product used for unknown indication
     Dosage: TAKE 3000 UNITS BY MOUTH THREE TIMES DAILY TAKE WITH LACTULOSE
     Route: 048
  19. CHRONULAC [Concomitant]
     Active Substance: LACTULOSE
     Indication: Bowel movement irregularity
     Dosage: 20 GRAM/30 ML (TAKE 30 ML 2-3 TIMES DAILY, TITRATE AS NEEDED TO HAVE 3-4 BOWEL MOVEMENTS)
     Route: 048
     Dates: start: 20221215, end: 20240116
  20. CHRONULAC [Concomitant]
     Active Substance: LACTULOSE
     Indication: Hepatic encephalopathy
  21. SYNTHROID [Concomitant]
     Active Substance: LEVOTHYROXINE SODIUM
     Indication: Product used for unknown indication
     Dosage: BEFORE BREAKFAST
     Route: 048
     Dates: start: 20230215, end: 20230719
  22. ZENPEP [Concomitant]
     Active Substance: PANCRELIPASE AMYLASE\PANCRELIPASE LIPASE\PANCRELIPASE PROTEASE
     Indication: Product used for unknown indication
     Dosage: 25000-79000-105000 UNIT ORAL CPDR, TAKE 1 CAPSULE TID WITH MEALS
     Route: 048
     Dates: start: 20221122, end: 20230918
  23. PANCRELIPASE AMYLASE\PANCRELIPASE LIPASE\PANCRELIPASE PROTEASE [Concomitant]
     Active Substance: PANCRELIPASE AMYLASE\PANCRELIPASE LIPASE\PANCRELIPASE PROTEASE
     Indication: Product used for unknown indication
     Dosage: 36000-114000-180000 UNIT ORAL CPDR, TAKE 1 CAPSULE WITH MEALS WHILE WAITING FOR ZENZEP
     Route: 048
     Dates: start: 20230412, end: 20230414
  24. MAGNESIUM [Concomitant]
     Active Substance: MAGNESIUM
     Indication: Product used for unknown indication
     Route: 048
     Dates: start: 20200605
  25. DIETARY SUPPLEMENT\HERBALS\MILK THISTLE [Concomitant]
     Active Substance: MILK THISTLE
     Indication: Product used for unknown indication
     Route: 048
     Dates: end: 20230822
  26. VITAMINS [Concomitant]
     Active Substance: VITAMINS
     Indication: Product used for unknown indication
     Route: 048
     Dates: start: 20220715
  27. ZOFRAN [Concomitant]
     Active Substance: ONDANSETRON HYDROCHLORIDE
     Indication: Nausea
     Route: 048
  28. ZOFRAN [Concomitant]
     Active Substance: ONDANSETRON HYDROCHLORIDE
     Indication: Vomiting
  29. PROTONIX [Concomitant]
     Active Substance: PANTOPRAZOLE SODIUM
     Indication: Product used for unknown indication
     Route: 048
     Dates: start: 20221115, end: 20230605
  30. MIRALAX [Concomitant]
     Active Substance: POLYETHYLENE GLYCOL 3350
     Indication: Product used for unknown indication
     Dosage: TAKE 17 G BY MOUTH DAILY MIX IN 8 OZ. OF FLUID
     Route: 048
     Dates: start: 20220715
  31. DELTASONE [Concomitant]
     Active Substance: PREDNISONE
     Indication: Contrast media allergy
     Dosage: 13 HOURS, 7 HOURS AND 1 HOUR PRIOR TO MRI SCAN
     Route: 048
     Dates: start: 20220310
  32. HYDROCIL INSTANT [Concomitant]
     Indication: Product used for unknown indication
     Dosage: TAKE 1 PACKET BY MOUTH DAILY, MIX IN SHAKER CUP WITH AT LEAST 8 OZ. OF FLUID
     Route: 048
     Dates: start: 20220715
  33. CARAFATE [Concomitant]
     Active Substance: SUCRALFATE
     Indication: Mouth ulceration
     Dosage: 1G FOR 1 TO 2 MN AFTER ROUTINE MOUTH CARE, ALT SUS MAYBE APPL DIRECTLY ORAL ULCER USING COTTON TIP
     Route: 048
     Dates: start: 20221215
  34. KENALOG [Concomitant]
     Active Substance: TRIAMCINOLONE ACETONIDE
     Indication: Product used for unknown indication
     Dosage: APPLY TO AFFECTED AREA TWICE DAILY
     Route: 061
  35. DIOVAN [Concomitant]
     Active Substance: VALSARTAN
     Indication: Product used for unknown indication
     Route: 048
     Dates: start: 20220629, end: 20230721
  36. ZINCATE [Concomitant]
     Indication: Product used for unknown indication
     Dosage: 1 CAPSULE 50 MG ZINC (220 MG TOTAL)
     Route: 048
     Dates: start: 20220715
  37. METROGEL [Concomitant]
     Active Substance: METRONIDAZOLE
     Indication: Product used for unknown indication
     Dosage: APPLY PEA SIZED AMOUNT TO FULL FACE ONCE DAILY
     Route: 061
     Dates: start: 20230107
  38. PROVENTIL [Concomitant]
     Active Substance: ALBUTEROL
     Indication: Wheezing
     Dosage: INHALE 180 MCG (2 PUFFS TOTAL) IN LUNGS EVERY 6 HOURS AS NEEDED
     Route: 055
     Dates: start: 20190823
  39. VENTOLIN HFA [Concomitant]
     Active Substance: ALBUTEROL SULFATE
     Indication: Wheezing
     Dosage: INHALE 180 MCG (2 PUFFS TOTAL) IN LUNGS EVERY 6 HOURS AS NEEDED
     Route: 055
     Dates: start: 20190823
  40. HEMA PLEX [Concomitant]
     Indication: Product used for unknown indication

REACTIONS (31)
  - Pancreatic disorder [Unknown]
  - Abdominal hernia [Unknown]
  - Haemorrhage [Unknown]
  - Sinus congestion [Unknown]
  - Nasal congestion [Unknown]
  - Dry mouth [Unknown]
  - Oral pain [Unknown]
  - Photophobia [Unknown]
  - Dry eye [Unknown]
  - Productive cough [Unknown]
  - Fall [Unknown]
  - Thirst [Unknown]
  - Temperature intolerance [Unknown]
  - Temperature intolerance [Unknown]
  - Anxiety [Unknown]
  - Amnesia [Unknown]
  - Dysphonia [Unknown]
  - Increased tendency to bruise [Unknown]
  - Brain fog [Unknown]
  - Abdominal distension [Unknown]
  - Rash [Unknown]
  - Nervousness [Unknown]
  - Constipation [Unknown]
  - Arthralgia [Unknown]
  - Neck pain [Unknown]
  - Back pain [Unknown]
  - Myalgia [Unknown]
  - Pruritus [Unknown]
  - Headache [Unknown]
  - Therapy interrupted [Unknown]
  - Insurance issue [Unknown]

NARRATIVE: CASE EVENT DATE: 20240105
